FAERS Safety Report 5055560-7 (Version None)
Quarter: 2006Q3

REPORT INFORMATION
  Report Type: 
  Country: None (occurrence: None)
  Receive Date: 20060714
  Receipt Date: 20060627
  Transmission Date: 20061208
  Serious: Yes (Hospitalization)
  Sender: FDA-Public Use
  Company Number: US_0509121825

PATIENT
  Sex: Male
  Weight: 94.3 kg

DRUGS (1)
  1. ZYPREXA [Suspect]
     Dosage: ORAL
     Route: 048
     Dates: start: 19960101

REACTIONS (7)
  - AMNESIA [None]
  - DIABETES MELLITUS [None]
  - GASTROINTESTINAL DISORDER [None]
  - GENERAL PHYSICAL HEALTH DETERIORATION [None]
  - HEADACHE [None]
  - HYPERTENSION [None]
  - INJURY [None]
